FAERS Safety Report 8960581 (Version 1)
Quarter: 2012Q4

REPORT INFORMATION
  Report Type: Spontaneous
  Country: GB (occurrence: None)
  Receive Date: 20121203
  Receipt Date: 20121203
  Transmission Date: 20130627
  Serious: Yes (Hospitalization)
  Sender: FDA-Public Use
  Company Number: 2012GB0403

PATIENT
  Age: 50 Year
  Sex: Male

DRUGS (15)
  1. ANAKINRA [Suspect]
     Indication: STILL^S DISEASE ADULT ONSET
     Dosage: (100 mg, 1 in 1 D)
     Route: 058
     Dates: start: 20080315, end: 20120515
  2. METHOTREXATE (METHOTREXATE)(30 MILLIGRAM, INJECTION) [Concomitant]
  3. PREDNISOLONE (PREDNISOLONE)(5 MILLIGRAM, TABLETS) [Concomitant]
  4. FOLIC ACID (FOLIC ACID)(5 MILLIGRAM, TABLETS) [Concomitant]
  5. PANTOPRAZOLE (PANTOPRAZOLE)(21 MILLIGRAM, TABLETS) [Concomitant]
  6. SERTRALINE (SERTRALINE)(100 MILLIGRAM, TABLETS) [Concomitant]
  7. AMLODIPINE (AMLODIPINE)(5 MILLIGRAM, TABLETS) [Concomitant]
  8. ROSUVASTATIN (ROSUVASTATIN) (10 MILLIGRAM, TABLETS) [Concomitant]
  9. PERINDOPRIL TERTBUTYLAMINE (PERINDOPRIL TERTBUTYLAMINE)(4 MILLIGRAM, TABLETS) [Concomitant]
  10. ADCAL-D3 (CALCIUM CARBONATE, COLECALCIFEROL) [Concomitant]
  11. SERETIDE 250 (SALMETEROL, FLUTICASONE) [Concomitant]
  12. RISEDRONATE (RISEDRONATE)(35 MILLIGRAM, TABLETS) [Concomitant]
  13. PARACETAMOL (PARACETAMOL)(500 MILLIGRAM, TABLETS) [Concomitant]
  14. CODEINE PHOSPHATE (CODEINE PHOSPHATE)(30 MILLIGRAM, TABLETS) [Concomitant]
  15. SALBUTAMOL EASI-BREATHE (CFC FREE)(SALBUTAMOL) [Concomitant]

REACTIONS (4)
  - Pericarditis [None]
  - No therapeutic response [None]
  - Pharyngitis [None]
  - Therapy cessation [None]
